FAERS Safety Report 26021551 (Version 4)
Quarter: 2025Q4

REPORT INFORMATION
  Report Type: Report from Study
  Country: EU (occurrence: EU)
  Receive Date: 20251110
  Receipt Date: 20251120
  Transmission Date: 20260117
  Serious: Yes (Death, Other)
  Sender: PFIZER
  Company Number: EU-PFM-2022-04808

PATIENT
  Sex: Male
  Weight: 82 kg

DRUGS (2)
  1. BRAFTOVI [Suspect]
     Active Substance: ENCORAFENIB
     Indication: Colorectal cancer
     Dosage: 150 MG, QD (1/DAY)
     Route: 048
     Dates: start: 20210826, end: 20211223
  2. CETUXIMAB [Suspect]
     Active Substance: CETUXIMAB
     Indication: Colon cancer
     Dosage: 250 MG/M2, WEEKLY
     Route: 042
     Dates: start: 20210901, end: 20211122

REACTIONS (7)
  - General physical health deterioration [Fatal]
  - Polyneuropathy [Not Recovered/Not Resolved]
  - Dysuria [Recovered/Resolved]
  - Abdominal pain lower [Not Recovered/Not Resolved]
  - Nausea [Unknown]
  - Vomiting [Unknown]
  - Pain [Unknown]

NARRATIVE: CASE EVENT DATE: 20211025
